FAERS Safety Report 6288609-4 (Version None)
Quarter: 2009Q3

REPORT INFORMATION
  Report Type: 
  Country: None (occurrence: None)
  Receive Date: 20090727
  Receipt Date: 20090710
  Transmission Date: 20100115
  Serious: Yes (Other)
  Sender: FDA-Public Use
  Company Number: DE-1169874

PATIENT
  Sex: Female

DRUGS (1)
  1. FLUORESCITE [Suspect]
     Dosage: INTRAVENOUS BOLUS
     Route: 040

REACTIONS (2)
  - DYSPNOEA [None]
  - PARAESTHESIA [None]
